FAERS Safety Report 5202685-9 (Version None)
Quarter: 2006Q4

REPORT INFORMATION
  Report Type: 
  Country: None (occurrence: None)
  Receive Date: 20061018
  Receipt Date: 20050110
  Transmission Date: 20070319
  Serious: Yes (Hospitalization)
  Sender: FDA-Public Use
  Company Number: PHEH2004US13445

PATIENT
  Age: 83 Year
  Sex: Male
  Weight: 78.2 kg

DRUGS (7)
  1. ZOMETA [Suspect]
     Indication: OSTEOPOROSIS
     Dosage: 4 MG, INFUSION
     Dates: start: 20040628, end: 20040628
  2. ATENOLOL [Concomitant]
  3. VITAMIN B12 [Concomitant]
  4. FLAGYL [Concomitant]
  5. TETRACYCLINE [Concomitant]
  6. CALCIUM (CALCIUM) [Concomitant]
  7. VITAMIN D [Concomitant]

REACTIONS (9)
  - ARTHRALGIA [None]
  - BLOOD CREATININE INCREASED [None]
  - CHILLS [None]
  - DEHYDRATION [None]
  - MYALGIA [None]
  - PAIN [None]
  - POLYARTHRITIS [None]
  - PYREXIA [None]
  - VOMITING [None]
